FAERS Safety Report 11625987 (Version 2)
Quarter: 2015Q4

REPORT INFORMATION
  Report Type: Report from Study
  Country: US (occurrence: US)
  Receive Date: 20151013
  Receipt Date: 20151201
  Transmission Date: 20160304
  Serious: Yes (Hospitalization)
  Sender: FDA-Public Use
  Company Number: US-MALLINCKRODT-T201503479

PATIENT
  Sex: Female

DRUGS (2)
  1. REPOSITORY CORTICOTROPIN INJECTION [Suspect]
     Active Substance: CORTICOTROPIN
     Indication: NEPHROTIC SYNDROME
     Dosage: 80 UNITS, TWICE WEEKLY
     Route: 058
     Dates: start: 20150604, end: 20150719
  2. REPOSITORY CORTICOTROPIN INJECTION [Suspect]
     Active Substance: CORTICOTROPIN
     Indication: PROTEINURIA
     Dosage: 80 UNITS, TWICE WEEKLY
     Route: 058
     Dates: end: 20151001

REACTIONS (5)
  - Compartment syndrome [Recovering/Resolving]
  - Unevaluable event [Recovered/Resolved]
  - Dialysis [Not Recovered/Not Resolved]
  - Swelling [Recovered/Resolved]
  - Genitourinary symptom [Unknown]

NARRATIVE: CASE EVENT DATE: 2015
